FAERS Safety Report 9541599 (Version 2)
Quarter: 2013Q3

REPORT INFORMATION
  Report Type: Spontaneous
  Country: US (occurrence: JP)
  Receive Date: 20130923
  Receipt Date: 20130930
  Transmission Date: 20140515
  Serious: Yes (Death, Hospitalization, Other)
  Sender: FDA-Public Use
  Company Number: 2013SP006703

PATIENT
  Age: 83 Year
  Sex: Male
  Weight: 41 kg

DRUGS (3)
  1. VANCOMYCIN [Suspect]
     Indication: PNEUMONIA
     Route: 042
     Dates: start: 20130730, end: 20130811
  2. LINEZOLID [Suspect]
     Indication: PNEUMONIA
     Route: 042
     Dates: start: 20130812
  3. MEROPENEM [Concomitant]
     Indication: PNEUMONIA
     Route: 042
     Dates: start: 20130730

REACTIONS (4)
  - Cardiac failure [Fatal]
  - Renal impairment [Unknown]
  - Platelet count decreased [Not Recovered/Not Resolved]
  - Drug ineffective [Unknown]
